FAERS Safety Report 4925862-0 (Version None)
Quarter: 2006Q1

REPORT INFORMATION
  Report Type: 
  Country: None (occurrence: None)
  Receive Date: 20060228
  Receipt Date: 20050330
  Transmission Date: 20060701
  Serious: Yes (Hospitalization, Other)
  Sender: FDA-Public Use
  Company Number: US-GLAXOSMITHKLINE-A0552388A

PATIENT
  Age: 41 Year
  Sex: Female
  Weight: 76.4 kg

DRUGS (6)
  1. LAMICTAL [Suspect]
     Route: 048
     Dates: start: 20040928
  2. SEROQUEL [Concomitant]
     Dosage: 100MG AT NIGHT
     Route: 048
  3. PROZAC [Concomitant]
     Dosage: 10MG PER DAY
     Route: 048
  4. KLONOPIN [Concomitant]
     Dosage: .5MG TWICE PER DAY
     Route: 048
  5. RESTORIL [Concomitant]
     Dosage: 30MG AT NIGHT
  6. WELLBUTRIN XL [Concomitant]
     Dosage: 300MG PER DAY
     Route: 048

REACTIONS (19)
  - ALOPECIA [None]
  - DYSKINESIA [None]
  - DYSPHAGIA [None]
  - GASTROINTESTINAL MOTILITY DISORDER [None]
  - LACRIMAL DISORDER [None]
  - MICTURITION DISORDER [None]
  - MUCOSAL INFLAMMATION [None]
  - MUCOSAL ULCERATION [None]
  - MUCOUS MEMBRANE DISORDER [None]
  - NAIL DISORDER [None]
  - ONYCHOMADESIS [None]
  - ORAL SOFT TISSUE DISORDER [None]
  - PRURITUS [None]
  - RASH [None]
  - RESPIRATORY DISORDER [None]
  - SKIN DISORDER [None]
  - STEVENS-JOHNSON SYNDROME [None]
  - VISION BLURRED [None]
  - VISUAL DISTURBANCE [None]
